FAERS Safety Report 7008072-5 (Version None)
Quarter: 2010Q3

REPORT INFORMATION
  Report Type: 
  Country: None (occurrence: None)
  Receive Date: 20100922
  Receipt Date: 20100913
  Transmission Date: 20110219
  Serious: Yes (Other)
  Sender: FDA-Public Use
  Company Number: US-PURDUE-USA-2010-0046671

PATIENT

DRUGS (2)
  1. OXYCONTIN [Suspect]
     Indication: DRUG ABUSE
  2. MARIJUANA [Suspect]
     Indication: DRUG ABUSE

REACTIONS (3)
  - HYPOTHERMIA [None]
  - IMPAIRED DRIVING ABILITY [None]
  - SUBSTANCE ABUSE [None]
